FAERS Safety Report 18616202 (Version 3)
Quarter: 2021Q2

REPORT INFORMATION
  Report Type: Spontaneous
  Country: US (occurrence: US)
  Receive Date: 20201215
  Receipt Date: 20210423
  Transmission Date: 20210717
  Serious: Yes (Hospitalization)
  Sender: FDA-Public Use
  Company Number: US-GLOBAL BLOOD THERAPEUTICS INC-US-GBT-20-02578

PATIENT
  Age: 43 Year
  Sex: Female

DRUGS (7)
  1. OXBRYTA [Suspect]
     Active Substance: VOXELOTOR
     Route: 048
     Dates: start: 2020, end: 2020
  2. OXBRYTA [Suspect]
     Active Substance: VOXELOTOR
     Route: 048
     Dates: start: 202103
  3. OXBRYTA [Suspect]
     Active Substance: VOXELOTOR
     Indication: SICKLE CELL DISEASE
     Route: 048
     Dates: start: 20200828, end: 2020
  4. OXBRYTA [Suspect]
     Active Substance: VOXELOTOR
     Route: 048
     Dates: start: 202012
  5. OXBRYTA [Suspect]
     Active Substance: VOXELOTOR
     Route: 048
     Dates: end: 2021
  6. OXBRYTA [Suspect]
     Active Substance: VOXELOTOR
     Route: 048
     Dates: start: 2021, end: 202103
  7. HYDROXYUREA. [Concomitant]
     Active Substance: HYDROXYUREA
     Indication: PRODUCT USED FOR UNKNOWN INDICATION
     Dosage: NOT PROVIDED

REACTIONS (22)
  - Dizziness [Recovered/Resolved]
  - Intentional product misuse [Unknown]
  - Flatulence [Recovering/Resolving]
  - Stress [Unknown]
  - Therapy non-responder [Unknown]
  - Sickle cell anaemia with crisis [Recovered/Resolved]
  - Constipation [Recovered/Resolved]
  - Abdominal pain upper [Recovered/Resolved]
  - Alopecia [Recovered/Resolved]
  - Nausea [Recovered/Resolved]
  - Product dose omission issue [Unknown]
  - Pain [Unknown]
  - Sickle cell anaemia with crisis [Not Recovered/Not Resolved]
  - Headache [Recovered/Resolved]
  - Malaise [Unknown]
  - Sickle cell anaemia with crisis [Recovered/Resolved]
  - Diarrhoea [Recovered/Resolved]
  - Rash [Recovered/Resolved]
  - Swelling face [Unknown]
  - Ageusia [Unknown]
  - Decreased appetite [Unknown]
  - Fatigue [Recovered/Resolved]

NARRATIVE: CASE EVENT DATE: 2020
